FAERS Safety Report 5473556-8 (Version None)
Quarter: 2007Q4

REPORT INFORMATION
  Report Type: 
  Country: None (occurrence: None)
  Receive Date: 20071001
  Receipt Date: 20070517
  Transmission Date: 20080405
  Serious: No
  Sender: FDA-Public Use
  Company Number: US-ASTRAZENECA-2007UW12337

PATIENT
  Sex: Female

DRUGS (4)
  1. ARIMIDEX [Suspect]
     Indication: BREAST CANCER FEMALE
     Route: 048
     Dates: start: 20060901
  2. ZOLOFT [Concomitant]
  3. GLUCOPHAGE [Concomitant]
  4. BLOOD PRESSURE MEDICATION [Concomitant]

REACTIONS (9)
  - ASTHENIA [None]
  - BRONCHITIS CHRONIC [None]
  - COUGH [None]
  - DEPRESSED MOOD [None]
  - FEELINGS OF WORTHLESSNESS [None]
  - HYPERHIDROSIS [None]
  - MYALGIA [None]
  - PSYCHIATRIC SYMPTOM [None]
  - STOMACH DISCOMFORT [None]
